FAERS Safety Report 9925318 (Version 1)
Quarter: 2014Q1

REPORT INFORMATION
  Report Type: Spontaneous
  Country: DK (occurrence: DK)
  Receive Date: 20140226
  Receipt Date: 20140226
  Transmission Date: 20141002
  Serious: Yes (Hospitalization, Congenital Anomaly)
  Sender: FDA-Public Use
  Company Number: DK-WATSON-2014-03078

PATIENT
  Age: 0 Day
  Sex: Male

DRUGS (1)
  1. SERTRALIN ACTAVIS [Suspect]
     Indication: DEPRESSION
     Dosage: STYRKE: 50 MG
     Route: 064
     Dates: start: 20010101

REACTIONS (2)
  - Persistent foetal circulation [Recovered/Resolved]
  - Foetal exposure during pregnancy [Recovered/Resolved]
